FAERS Safety Report 26019010 (Version 1)
Quarter: 2025Q4

REPORT INFORMATION
  Report Type: Spontaneous
  Country: CA (occurrence: CA)
  Receive Date: 20251110
  Receipt Date: 20251110
  Transmission Date: 20260118
  Serious: Yes (Other)
  Sender: CELLTRION
  Company Number: CA-CELLTRION INC.-2025CA040538

PATIENT

DRUGS (7)
  1. YUFLYMA [Suspect]
     Active Substance: ADALIMUMAB-AATY
     Indication: Juvenile idiopathic arthritis
     Dosage: MAINTENANCE - 40 MG - SC (SUBCUTANEOUS) EVERY 2 WEEKS
     Route: 058
     Dates: start: 20240531
  2. YUFLYMA [Suspect]
     Active Substance: ADALIMUMAB-AATY
  3. PREDNISONE [Concomitant]
     Active Substance: PREDNISONE
     Dosage: 7.5 MG
  4. ACTEMRA [Concomitant]
     Active Substance: TOCILIZUMAB
     Dosage: DATE OF LAST DOSE OF BIOLOGIC/BIOSIMILAR:  ACTEMRA (FRIDAY MAY 17 - TAKES IT ONCE A WEEK)
  5. ARAVA [Concomitant]
     Active Substance: LEFLUNOMIDE
     Dosage: 20 MG
  6. PROBIOTICS [PROBIOTICS NOS] [Concomitant]
  7. MORPHINE [Concomitant]
     Active Substance: MORPHINE

REACTIONS (2)
  - Jaw operation [Unknown]
  - Intentional dose omission [Unknown]
